FAERS Safety Report 5096362-5 (Version None)
Quarter: 2006Q3

REPORT INFORMATION
  Report Type: 
  Country: None (occurrence: None)
  Receive Date: 20060728
  Receipt Date: 20060515
  Transmission Date: 20061208
  Serious: No
  Sender: FDA-Public Use
  Company Number: COT_0530_2006

PATIENT
  Age: 57 Year
  Sex: Female
  Weight: 64.4108 kg

DRUGS (8)
  1. VENTAVIS [Suspect]
     Indication: PULMONARY HYPERTENSION
     Dosage: 5 MCG 6XD IH
     Dates: start: 20060426
  2. ALDACTONE [Concomitant]
  3. SILDENAFIL [Concomitant]
  4. MULTI-VITAMIN [Concomitant]
  5. DARVOCET [Concomitant]
  6. FUROSEMIDE [Concomitant]
  7. DIGITEX [Concomitant]
  8. WARFARIN SODIUM [Concomitant]

REACTIONS (1)
  - ABDOMINAL PAIN UPPER [None]
